FAERS Safety Report 7823957-5 (Version None)
Quarter: 2011Q4

REPORT INFORMATION
  Report Type: 
  Country: None (occurrence: None)
  Receive Date: 20111019
  Receipt Date: 20111010
  Transmission Date: 20120403
  Serious: Yes (Other)
  Sender: FDA-Public Use
  Company Number: US-JNJFOC-20111004792

PATIENT
  Sex: Female
  Weight: 65.77 kg

DRUGS (3)
  1. DOXORUBICIN HCL [Suspect]
     Indication: OVARIAN CANCER
     Route: 042
     Dates: start: 20080101, end: 20100101
  2. PAIN MEDICATION UNSPECIFIED [Concomitant]
     Indication: BACK PAIN
     Route: 048
  3. CHEMOTHERAPEUTICS NOS [Suspect]
     Indication: OVARIAN CANCER
     Route: 065
     Dates: start: 20100101

REACTIONS (3)
  - ADVERSE DRUG REACTION [None]
  - NEOPLASM [None]
  - NEOPLASM MALIGNANT [None]
